FAERS Safety Report 9855143 (Version 1)
Quarter: 2014Q1

REPORT INFORMATION
  Report Type: Spontaneous
  Country: BR (occurrence: None)
  Receive Date: 20140127
  Receipt Date: 20140127
  Transmission Date: 20141002
  Serious: Yes (Hospitalization, Disabling)
  Sender: FDA-Public Use
  Company Number: 2014P1000337

PATIENT
  Age: 18 Year
  Sex: Male

DRUGS (6)
  1. ISOTRETINOIN [Suspect]
     Indication: ACNE FULMINANS
     Route: 048
  2. BETAMETHASONE [Concomitant]
  3. GENTAMICIN [Concomitant]
  4. BENZOYL PEROIXDE [Concomitant]
  5. DAPASONE [Concomitant]
  6. MINOCYCLINE [Concomitant]

REACTIONS (1)
  - Sacroiliitis [None]
